FAERS Safety Report 5320264-X (Version None)
Quarter: 2007Q2

REPORT INFORMATION
  Report Type: 
  Country: None (occurrence: None)
  Receive Date: 20070503
  Receipt Date: 20070503
  Transmission Date: 20071010
  Serious: Yes (Other)
  Sender: FDA-Public Use
  Company Number: None

PATIENT
  Age: 67 Year
  Sex: Female
  Weight: 57.1532 kg

DRUGS (1)
  1. ZELNORM [Suspect]
     Indication: GASTROINTESTINAL DISORDER
     Dosage: 1 PER DAY ONCE A WEEK RECTAL
     Route: 054
     Dates: start: 20070102, end: 20070131

REACTIONS (1)
  - PAIN [None]
